FAERS Safety Report 24227248 (Version 1)
Quarter: 2024Q3

REPORT INFORMATION
  Report Type: Spontaneous
  Country: US (occurrence: US)
  Receive Date: 20240820
  Receipt Date: 20240820
  Transmission Date: 20241017
  Serious: Yes (Life-Threatening, Hospitalization, Other)
  Sender: HIKMA
  Company Number: US-MLMSERVICE-20221201-3953665-1

PATIENT
  Age: 7 Decade
  Sex: Female

DRUGS (6)
  1. ACETAMINOPHEN [Suspect]
     Active Substance: ACETAMINOPHEN
     Indication: Analgesic therapy
     Dosage: 1 GRAM, Q6H, 1 G OF INTRAVENOUS ACETAMINOPHEN AT LEAST 6 HOURS APART, RECEIVING A TOTAL 13 G OF INTR
     Route: 042
  2. ESOMEPRAZOLE [Concomitant]
     Active Substance: ESOMEPRAZOLE
     Indication: Dyspepsia
     Dosage: UNK
     Route: 065
  3. HYDROMORPHONE [Concomitant]
     Active Substance: HYDROMORPHONE
     Indication: Breakthrough pain
     Dosage: UNK
     Route: 042
  4. LEVETIRACETAM [Concomitant]
     Active Substance: LEVETIRACETAM
     Indication: Seizure
     Dosage: UNK
     Route: 042
  5. ONDANSETRON [Concomitant]
     Active Substance: ONDANSETRON
     Indication: Nausea
     Dosage: UNK
     Route: 065
  6. PROPOFOL [Concomitant]
     Active Substance: PROPOFOL
     Indication: Sedative therapy
     Dosage: LESS THAN 165 MG
     Route: 065

REACTIONS (4)
  - Analgesic drug level increased [Recovering/Resolving]
  - Acute hepatic failure [Recovering/Resolving]
  - Hepatic encephalopathy [Recovered/Resolved]
  - Drug-induced liver injury [Recovering/Resolving]
